FAERS Safety Report 8894663 (Version 1)
Quarter: 2012Q4

REPORT INFORMATION
  Report Type: 
  Country: US (occurrence: US)
  Receive Date: 20121107
  Receipt Date: 20121107
  Transmission Date: 20130627
  Serious: No
  Sender: FDA-Public Use
  Company Number: US-AMGEN-USASP2011050505

PATIENT
  Age: 53 Year
  Sex: Female
  Weight: 190 kg

DRUGS (8)
  1. ENBREL [Suspect]
     Indication: PRODUCT USED FOR UNKNOWN INDICATION
     Dosage: 50 mg, qwk
  2. EFFEXOR [Concomitant]
     Dosage: 75 mg, UNK
  3. ABILIFY [Concomitant]
     Dosage: 15 mg, UNK
  4. KLONOPIN [Concomitant]
     Dosage: 2 mg, UNK
  5. METHOTREXATE [Concomitant]
     Dosage: 2.5 mg, UNK
  6. FOLIC ACID [Concomitant]
     Dosage: 1 mg, UNK
  7. PREDNISONE [Concomitant]
     Dosage: 1 mg, UNK
  8. LO-ASA [Concomitant]
     Dosage: 81 mg, UNK

REACTIONS (2)
  - Pain in extremity [Unknown]
  - Back pain [Unknown]
